FAERS Safety Report 8204637-3 (Version None)
Quarter: 2012Q1

REPORT INFORMATION
  Report Type: 
  Country: None (occurrence: None)
  Receive Date: 20120313
  Receipt Date: 20120306
  Transmission Date: 20120608
  Serious: Yes (Death)
  Sender: FDA-Public Use
  Company Number: KR-ELI_LILLY_AND_COMPANY-KR201203002724

PATIENT

DRUGS (3)
  1. DEXAMETHASONE [Concomitant]
     Dosage: 8 MG, OTHER
  2. GEMCITABINE HYDROCHLORIDE [Suspect]
     Indication: BONE SARCOMA
     Dosage: 1000 MG/M2, ON DAYS 1 AND 8 EVERY 21 DAYS
     Route: 042
  3. DOCETAXEL [Concomitant]
     Dosage: 35 MG/M2, ON DAYS 1 AND 8 OF A 21 DAY CYCLE
     Route: 042

REACTIONS (1)
  - PNEUMONIA [None]
